FAERS Safety Report 8180582-7 (Version None)
Quarter: 2012Q1

REPORT INFORMATION
  Report Type: 
  Country: None (occurrence: None)
  Receive Date: 20120302
  Receipt Date: 20120228
  Transmission Date: 20120608
  Serious: Yes (Other)
  Sender: FDA-Public Use
  Company Number: FR-ROCHE-1044303

PATIENT
  Sex: Female

DRUGS (10)
  1. PRAVASTATIN [Concomitant]
     Route: 048
     Dates: end: 20111215
  2. HALDOL [Concomitant]
     Dosage: 20 MG/ML
     Route: 048
     Dates: end: 20111214
  3. DIAMICRON [Concomitant]
     Route: 048
     Dates: end: 20111215
  4. TRANSIPEG (FRANCE) [Concomitant]
     Route: 048
  5. IRBESARTAN [Concomitant]
     Route: 048
  6. PRAZEPAM [Concomitant]
     Route: 048
     Dates: end: 20111209
  7. SEROQUEL [Suspect]
     Indication: PRODUCT USED FOR UNKNOWN INDICATION
     Route: 048
     Dates: start: 20111213
  8. MIANSERINE [Suspect]
     Indication: PRODUCT USED FOR UNKNOWN INDICATION
     Route: 048
     Dates: start: 20111213
  9. VALIUM [Suspect]
     Indication: ANXIETY
     Route: 048
     Dates: start: 20111213, end: 20111220
  10. FURADANTIN [Concomitant]
     Route: 048
     Dates: end: 20111215

REACTIONS (1)
  - ELECTROCARDIOGRAM QT PROLONGED [None]
